FAERS Safety Report 24535245 (Version 1)
Quarter: 2024Q4

REPORT INFORMATION
  Report Type: Spontaneous
  Country: FR (occurrence: FR)
  Receive Date: 20241022
  Receipt Date: 20241022
  Transmission Date: 20250114
  Serious: Yes (Hospitalization)
  Sender: SANDOZ
  Company Number: FR-NOVPHSZ-PHHY2019FR159769

PATIENT
  Age: 52 Year
  Sex: Male

DRUGS (1)
  1. MOXIFLOXACIN [Suspect]
     Active Substance: MOXIFLOXACIN
     Indication: Bronchitis
     Dosage: 400 MG, UNK
     Route: 048

REACTIONS (6)
  - Rash erythematous [Recovered/Resolved]
  - Nausea [Recovered/Resolved]
  - Dyspnoea [Recovered/Resolved]
  - Tachycardia [Recovered/Resolved]
  - Angioedema [Recovered/Resolved]
  - Pruritus [Recovered/Resolved]

NARRATIVE: CASE EVENT DATE: 20190114
